FAERS Safety Report 5979396-5 (Version None)
Quarter: 2008Q4

REPORT INFORMATION
  Report Type: 
  Country: None (occurrence: None)
  Receive Date: 20081204
  Receipt Date: 20081125
  Transmission Date: 20090506
  Serious: Yes (Hospitalization)
  Sender: FDA-Public Use
  Company Number: TH-TYCO HEALTHCARE/MALLINCKRODT-T200802016

PATIENT

DRUGS (1)
  1. OPTIRAY 300 [Suspect]
     Indication: COMPUTERISED TOMOGRAM ABDOMEN
     Dosage: 50 ML, SINGLE
     Route: 042
     Dates: start: 20080522, end: 20080522

REACTIONS (3)
  - BRONCHOSPASM [None]
  - NAUSEA [None]
  - PRURITUS [None]
